FAERS Safety Report 6610069-1 (Version None)
Quarter: 2010Q1

REPORT INFORMATION
  Report Type: 
  Country: None (occurrence: None)
  Receive Date: 20100302
  Receipt Date: 20100225
  Transmission Date: 20100710
  Serious: Yes (Life-Threatening, Hospitalization)
  Sender: FDA-Public Use
  Company Number: CH-ROCHE-687653

PATIENT
  Age: 7 Year
  Sex: Male
  Weight: 19 kg

DRUGS (32)
  1. ROCEPHIN [Suspect]
     Dosage: SHORT TERM
     Route: 040
     Dates: start: 20100110
  2. BACTRIM [Suspect]
     Indication: DRUG USE FOR UNKNOWN INDICATION
     Dosage: SHORT TERM
     Route: 041
     Dates: start: 20100110
  3. NEUPOGEN [Suspect]
     Indication: PROPHYLAXIS
     Route: 058
     Dates: start: 20100104, end: 20100109
  4. LIQUEMINE [Suspect]
     Dosage: AS NECESSARY
     Route: 040
     Dates: start: 20100110, end: 20100115
  5. CYTOSAR-U [Suspect]
     Indication: DRUG USE FOR UNKNOWN INDICATION
     Dosage: FORM: INFUSION
     Route: 041
     Dates: start: 20100104, end: 20100104
  6. SINTROM [Suspect]
     Dosage: LONG TERM; DRUG WITHDRAWN
     Route: 048
     Dates: start: 20080101, end: 20100109
  7. GARAMYCIN [Suspect]
     Indication: DRUG USE FOR UNKNOWN INDICATION
     Dosage: SHORT TERM
     Route: 040
     Dates: start: 20100110
  8. ACTEMRA [Concomitant]
     Indication: JUVENILE ARTHRITIS
     Route: 041
     Dates: start: 20080714
  9. PREDNISONE [Concomitant]
     Route: 048
     Dates: start: 20040101, end: 20100109
  10. ZOFRAN [Concomitant]
     Indication: NAUSEA
     Dosage: OTHER INDICATION: VOMITING; DOSAGE REGIMEN: 2 TOTAL
     Route: 048
     Dates: start: 20100104, end: 20100104
  11. MAXITROL [Concomitant]
     Indication: PROPHYLAXIS
     Route: 047
     Dates: start: 20100104, end: 20100110
  12. ASPIRIN [Concomitant]
     Dosage: LONG TERM
     Route: 048
  13. ANTRA [Concomitant]
     Dosage: LONG TERM
     Route: 048
     Dates: start: 20060101, end: 20100110
  14. CALCIMAGON [Concomitant]
     Route: 048
  15. NEXIUM [Concomitant]
     Dosage: SHORT TERM
     Route: 040
     Dates: start: 20100110
  16. SOLU-MEDROL [Concomitant]
     Indication: ACUTE RESPIRATORY DISTRESS SYNDROME
     Dosage: DOSAGE REGIMEN: ONE TOTAL
     Route: 040
     Dates: start: 20100109, end: 20100110
  17. PREDNISOLONE [Concomitant]
     Indication: ACUTE RESPIRATORY DISTRESS SYNDROME
     Route: 040
     Dates: start: 20100110
  18. NORCURON [Concomitant]
     Route: 040
     Dates: start: 20100110, end: 20100112
  19. SOLMUCOL [Concomitant]
     Route: 041
     Dates: start: 20100110
  20. DORMICUM [Concomitant]
     Route: 040
     Dates: start: 20100110, end: 20100114
  21. COROTROP [Concomitant]
     Route: 040
     Dates: start: 20100111, end: 20100115
  22. MORPHINE [Concomitant]
     Route: 041
     Dates: start: 20100110, end: 20100114
  23. CO-DAFALGAN [Concomitant]
     Dosage: DOSAGE REGIMEN: ONE TOTAL
     Route: 048
     Dates: start: 20100109, end: 20100109
  24. TAMIFLU [Concomitant]
     Indication: ACUTE RESPIRATORY DISTRESS SYNDROME
     Route: 048
     Dates: start: 20100110, end: 20100112
  25. LASIX [Concomitant]
     Route: 051
     Dates: start: 20100110
  26. ALDACTONE [Concomitant]
     Route: 048
     Dates: start: 20100110, end: 20100110
  27. SOLDACTONE [Concomitant]
     Route: 051
     Dates: start: 20100111
  28. PERFALGAN [Concomitant]
     Route: 051
     Dates: start: 20100110
  29. MINALGIN [Concomitant]
     Dosage: DOSAGE REGIMEN: 2 TOTAL
     Route: 051
     Dates: start: 20100110, end: 20100111
  30. VANCOMYCIN HCL [Concomitant]
     Route: 042
     Dates: start: 20100110, end: 20100111
  31. DOPAMINE HCL [Concomitant]
     Route: 051
     Dates: start: 20100110, end: 20100115
  32. NORADRENALINE [Concomitant]
     Route: 051
     Dates: start: 20100110, end: 20100119

REACTIONS (15)
  - ABDOMINAL PAIN [None]
  - ACUTE RESPIRATORY DISTRESS SYNDROME [None]
  - BLOOD DISORDER [None]
  - CARDIAC FAILURE [None]
  - DIARRHOEA [None]
  - GENERAL PHYSICAL HEALTH DETERIORATION [None]
  - HEPATOCELLULAR INJURY [None]
  - HYPOTENSION [None]
  - LUNG INFILTRATION [None]
  - PERITONITIS [None]
  - PNEUMOTHORAX [None]
  - RESPIRATORY FAILURE [None]
  - THROMBOCYTOPENIA [None]
  - VOMITING [None]
  - WRONG DRUG ADMINISTERED [None]
